FAERS Safety Report 12962883 (Version 1)
Quarter: 2016Q4

REPORT INFORMATION
  Report Type: Report from Study
  Country: AU (occurrence: AU)
  Receive Date: 20161122
  Receipt Date: 20161122
  Transmission Date: 20170207
  Serious: Yes (Hospitalization, Other)
  Sender: FDA-Public Use
  Company Number: AU-ROCHE-1855323

PATIENT

DRUGS (3)
  1. TELAPREVIR [Suspect]
     Active Substance: TELAPREVIR
     Indication: HEPATITIS C
     Route: 065
  2. PEG-INTERFERON ALFA 2A [Suspect]
     Active Substance: PEGINTERFERON ALFA-2A
     Indication: HEPATITIS C
     Route: 065
  3. RIBAVIRIN. [Suspect]
     Active Substance: RIBAVIRIN
     Indication: HEPATITIS C
     Route: 065

REACTIONS (26)
  - Treatment failure [Unknown]
  - Headache [Unknown]
  - Decreased appetite [Unknown]
  - Neutropenia [Unknown]
  - Insomnia [Unknown]
  - Injection site erythema [Unknown]
  - Nausea [Unknown]
  - Myalgia [Unknown]
  - Diarrhoea [Unknown]
  - Depressed mood [Unknown]
  - Injection site reaction [Unknown]
  - Abdominal pain [Unknown]
  - Fatigue [Unknown]
  - Arthralgia [Unknown]
  - Pruritus [Unknown]
  - Basal cell carcinoma [Unknown]
  - Anaemia [Unknown]
  - Lethargy [Unknown]
  - Proctalgia [Unknown]
  - Anxiety [Unknown]
  - Suicide attempt [Unknown]
  - Rash [Unknown]
  - Influenza like illness [Unknown]
  - Squamous cell carcinoma [Unknown]
  - Subcutaneous abscess [Unknown]
  - Irritability [Unknown]
